FAERS Safety Report 6598795-4 (Version None)
Quarter: 2010Q1

REPORT INFORMATION
  Report Type: 
  Country: None (occurrence: None)
  Receive Date: 20100217
  Receipt Date: 20100127
  Transmission Date: 20100710
  Serious: Yes (Death, Hospitalization)
  Sender: FDA-Public Use
  Company Number: 2009AC000117

PATIENT
  Age: 79 Year
  Sex: Male

DRUGS (8)
  1. DIGOXIN [Suspect]
     Dosage: .125 MG; QOD; PO
     Route: 048
  2. KEPPRA [Concomitant]
  3. PRILOSEC [Concomitant]
  4. TYLENOL-500 [Concomitant]
  5. FLAGYL [Concomitant]
  6. MAGNESIUM OXIDE [Concomitant]
  7. MILK OF MAGNESIA TAB [Concomitant]
  8. ALBUTEROL [Concomitant]

REACTIONS (8)
  - ASTHENIA [None]
  - CONFUSIONAL STATE [None]
  - CONTUSION [None]
  - ECCHYMOSIS [None]
  - ECONOMIC PROBLEM [None]
  - MULTIPLE INJURIES [None]
  - PNEUMONIA [None]
  - SEPSIS [None]
